FAERS Safety Report 7980313-7 (Version None)
Quarter: 2011Q4

REPORT INFORMATION
  Report Type: 
  Country: None (occurrence: None)
  Receive Date: 20111214
  Receipt Date: 20111125
  Transmission Date: 20120403
  Serious: Yes (Other)
  Sender: FDA-Public Use
  Company Number: PHHY2011IT104100

PATIENT
  Sex: Female

DRUGS (1)
  1. CLARITHROMYCIN [Suspect]
     Indication: OROPHARYNGEAL PAIN
     Dosage: 2 POSOLOGIC UNITS
     Route: 048
     Dates: start: 20110615, end: 20110622

REACTIONS (6)
  - MYALGIA [None]
  - ARTHRALGIA [None]
  - ACUTE FEBRILE NEUTROPHILIC DERMATOSIS [None]
  - ASTHENIA [None]
  - SKIN LESION [None]
  - ERYTHEMA [None]
